FAERS Safety Report 10039150 (Version 2)
Quarter: 2014Q2

REPORT INFORMATION
  Report Type: Spontaneous
  Country: IT (occurrence: IT)
  Receive Date: 20140326
  Receipt Date: 20140401
  Transmission Date: 20141212
  Serious: Yes (Other)
  Sender: FDA-Public Use
  Company Number: PHHY2014IT034662

PATIENT
  Age: 77 Year
  Sex: Female

DRUGS (3)
  1. GLIVEC [Suspect]
     Indication: CHRONIC MYELOID LEUKAEMIA
     Dosage: 400 MG, DAILY
     Dates: start: 200611
  2. LANSOPRAZOLE [Concomitant]
  3. FUROSEMIDE [Concomitant]

REACTIONS (2)
  - Uterine cancer [Unknown]
  - Second primary malignancy [Unknown]
